FAERS Safety Report 18154153 (Version 1)
Quarter: 2020Q3

REPORT INFORMATION
  Report Type: Report from Study
  Country: None (occurrence: US)
  Receive Date: 20200816
  Receipt Date: 20200816
  Transmission Date: 20201103
  Serious: Yes (Hospitalization)
  Sender: FDA-Public Use
  Company Number: US-ABBVIE-20K-163-3525019-00

PATIENT
  Age: 67 Year
  Sex: Male

DRUGS (2)
  1. HUMIRA [Suspect]
     Active Substance: ADALIMUMAB
     Route: 058
     Dates: start: 2020
  2. HUMIRA [Suspect]
     Active Substance: ADALIMUMAB
     Indication: COLITIS ULCERATIVE
     Dosage: CF
     Route: 058
     Dates: start: 20200329, end: 2020

REACTIONS (2)
  - Loss of consciousness [Unknown]
  - Seizure [Recovered/Resolved with Sequelae]

NARRATIVE: CASE EVENT DATE: 20200813
